FAERS Safety Report 19429494 (Version 2)
Quarter: 2021Q3

REPORT INFORMATION
  Report Type: Report from Study
  Country: US (occurrence: US)
  Receive Date: 20210617
  Receipt Date: 20210721
  Transmission Date: 20211014
  Serious: Yes (Hospitalization, Other)
  Sender: FDA-Public Use
  Company Number: NVSC2021US128386

PATIENT
  Age: 68 Year
  Sex: Male

DRUGS (1)
  1. ENTRESTO [Suspect]
     Active Substance: SACUBITRIL\VALSARTAN
     Indication: CARDIAC FAILURE
     Dosage: 50 MG, BID (24/26 MG)
     Route: 048
     Dates: start: 20210201

REACTIONS (4)
  - Fluid retention [Recovering/Resolving]
  - Complication associated with device [Unknown]
  - Dyspnoea [Recovering/Resolving]
  - Arrhythmia [Unknown]

NARRATIVE: CASE EVENT DATE: 20210404
